FAERS Safety Report 18345915 (Version 1)
Quarter: 2020Q4

REPORT INFORMATION
  Report Type: Report from Study
  Country: DE (occurrence: DE)
  Receive Date: 20201005
  Receipt Date: 20201005
  Transmission Date: 20210114
  Serious: Yes (Death, Other)
  Sender: FDA-Public Use
  Company Number: DE-JNJFOC-20200946153

PATIENT

DRUGS (1)
  1. DUROGESIC SMAT [Suspect]
     Active Substance: FENTANYL
     Indication: PRODUCT USED FOR UNKNOWN INDICATION
     Route: 065

REACTIONS (10)
  - Accidental exposure to product [Unknown]
  - Adverse drug reaction [Unknown]
  - Vomiting [Unknown]
  - Depressed level of consciousness [Unknown]
  - Drug abuse [Unknown]
  - Death [Fatal]
  - Medication error [Unknown]
  - Suicide attempt [Unknown]
  - Respiratory depression [Unknown]
  - Nausea [Unknown]
